FAERS Safety Report 6966242-6 (Version None)
Quarter: 2010Q3

REPORT INFORMATION
  Report Type: 
  Country: None (occurrence: None)
  Receive Date: 20100903
  Receipt Date: 20100831
  Transmission Date: 20110219
  Serious: Yes (Death)
  Sender: FDA-Public Use
  Company Number: DK-GILEAD-2010-0027707

PATIENT
  Sex: Male
  Weight: 94 kg

DRUGS (1)
  1. ATRIPLA [Suspect]
     Indication: HIV INFECTION
     Route: 048
     Dates: start: 20070707

REACTIONS (1)
  - ACUTE MYOCARDIAL INFARCTION [None]
